FAERS Safety Report 5463930-8 (Version None)
Quarter: 2007Q3

REPORT INFORMATION
  Report Type: 
  Country: None (occurrence: None)
  Receive Date: 20070921
  Receipt Date: 20070613
  Transmission Date: 20080115
  Serious: No
  Sender: FDA-Public Use
  Company Number: A0655902A

PATIENT
  Sex: Female

DRUGS (2)
  1. AVANDARYL [Suspect]
     Indication: DRUG USE FOR UNKNOWN INDICATION
     Route: 048
     Dates: start: 20070501
  2. JANUVIA [Concomitant]

REACTIONS (1)
  - WEIGHT INCREASED [None]
